FAERS Safety Report 16299367 (Version 4)
Quarter: 2019Q2

REPORT INFORMATION
  Report Type: Spontaneous
  Country: JP (occurrence: JP)
  Receive Date: 20190510
  Receipt Date: 20190604
  Transmission Date: 20190711
  Serious: Yes (Hospitalization, Other)
  Sender: FDA-Public Use
  Company Number: JP-BAUSCH-BL-2019-013555

PATIENT
  Age: 74 Year
  Sex: Male
  Weight: 50 kg

DRUGS (13)
  1. DEXAMETHASONE. [Suspect]
     Active Substance: DEXAMETHASONE
     Dosage: DEXAMETHASONE (ON DAYS 9-11 ORALLY); 6 CYCLICAL
     Route: 048
  2. CISPLATIN. [Suspect]
     Active Substance: CISPLATIN
     Dosage: DOSE OF CDDP WAS REDUCED TO 60 MG/D IN THE NINTH CYCLE; 1 CYCLICAL
     Route: 065
  3. TEGAFUR, GIMERACIL, OTERACIL POTASSIUM [Suspect]
     Active Substance: GIMERACIL\OTERACIL\TEGAFUR
     Indication: GASTRIC CANCER STAGE IV
     Dosage: S-1 (80 MG/D ON DAYS 1-21) 11 CYCLES
     Route: 065
  4. APREPITANT. [Concomitant]
     Active Substance: APREPITANT
     Dosage: 80 MG ON DAY 9 AND DAY 10
  5. SILODOSIN HYDROCHLORIDE [Concomitant]
     Indication: PRODUCT USED FOR UNKNOWN INDICATION
  6. CISPLATIN. [Suspect]
     Active Substance: CISPLATIN
     Dosage: DAY 8; 8 CYCLICAL
     Route: 065
  7. DEXAMETHASONE. [Suspect]
     Active Substance: DEXAMETHASONE
     Indication: ANTIEMETIC SUPPORTIVE CARE
     Dosage: DOSE OF DEX FROM 8 MG/D TO 4 MG/D (ORAL ON DAY 9-11); 2 CYCLICAL
     Route: 048
  8. DEXAMETHASONE. [Suspect]
     Active Substance: DEXAMETHASONE
     Indication: ANTIEMETIC SUPPORTIVE CARE
     Dosage: DOSE OF DEX FROM 8 MG/D TO 4 MG/D (INTRAVENOUS INJECTION ON DAY 8); 2 CYCLICAL
     Route: 042
  9. MAGNESIUM OXIDE. [Concomitant]
     Active Substance: MAGNESIUM OXIDE
     Indication: PRODUCT USED FOR UNKNOWN INDICATION
  10. CISPLATIN. [Suspect]
     Active Substance: CISPLATIN
     Indication: GASTRIC CANCER STAGE IV
     Dosage: THE DOSE OF CDDP INCREASED TO 70 MG/D; 2 CYCLICAL
     Route: 065
  11. AZASETRON [Suspect]
     Active Substance: AZASETRON
     Indication: ANTIEMETIC SUPPORTIVE CARE
     Dosage: 8 CYCLICAL
     Route: 042
  12. APREPITANT. [Concomitant]
     Active Substance: APREPITANT
     Indication: PRODUCT USED FOR UNKNOWN INDICATION
     Dosage: DAY 8
  13. DEXAMETHASONE. [Suspect]
     Active Substance: DEXAMETHASONE
     Dosage: DEXAMETHASONE (8 MG/D ON DAY 8 INTRAVENOUSLY); 6 CYCLICAL
     Route: 042

REACTIONS (5)
  - Sleep disorder [Unknown]
  - Loss of personal independence in daily activities [Unknown]
  - Nausea [Unknown]
  - Eating disorder [Unknown]
  - Hiccups [Recovered/Resolved]
